FAERS Safety Report 8854120 (Version 4)
Quarter: 2013Q1

REPORT INFORMATION
  Report Type: Spontaneous
  Country: US (occurrence: US)
  Receive Date: 20121022
  Receipt Date: 20130308
  Transmission Date: 20140127
  Serious: Yes (Hospitalization, Other)
  Sender: FDA-Public Use
  Company Number: US-009507513-1202USA03512

PATIENT
  Sex: Female

DRUGS (7)
  1. FOSAMAX [Suspect]
     Indication: OSTEOPENIA
     Dosage: 70 MG, QW
     Route: 048
     Dates: end: 200708
  2. FOSAMAX [Suspect]
     Indication: OSTEOPOROSIS
  3. BONIVA [Suspect]
     Indication: OSTEOPENIA
     Dosage: 150 MG, QM
     Route: 048
     Dates: start: 200709, end: 201003
  4. SYNTHROID [Concomitant]
     Dosage: UNK
     Dates: start: 1994
  5. TUMS [Concomitant]
     Dosage: 1000U
  6. CALCIUM (UNSPECIFIED) [Concomitant]
     Dosage: 1500 DF, UNK
  7. VITAMINS (UNSPECIFIED) [Concomitant]

REACTIONS (11)
  - Intramedullary rod insertion [Unknown]
  - Bladder repair [Unknown]
  - Femur fracture [Unknown]
  - Low turnover osteopathy [Unknown]
  - Biopsy tongue [Unknown]
  - Oral surgery [Unknown]
  - Cataract operation [Unknown]
  - Onychomycosis [Unknown]
  - Irritable bowel syndrome [Unknown]
  - Coeliac disease [Unknown]
  - Glaucoma [Unknown]
